FAERS Safety Report 18877374 (Version 1)
Quarter: 2021Q1

REPORT INFORMATION
  Report Type: Spontaneous
  Country: CN (occurrence: CN)
  Receive Date: 20210211
  Receipt Date: 20210211
  Transmission Date: 20210420
  Serious: Yes (Other)
  Sender: FDA-Public Use
  Company Number: CN-SUN PHARMACEUTICAL INDUSTRIES LTD-2021R1-278452

PATIENT
  Age: 57 Year
  Sex: Male

DRUGS (1)
  1. IMATINIB. [Suspect]
     Active Substance: IMATINIB MESYLATE
     Dosage: 400 MILLIGRAM, DAILY
     Route: 048
     Dates: start: 201305

REACTIONS (3)
  - Diarrhoea [Recovered/Resolved]
  - Oedema [Recovered/Resolved]
  - Myxofibrosarcoma [Unknown]
